FAERS Safety Report 22189912 (Version 6)
Quarter: 2024Q4

REPORT INFORMATION
  Report Type: Report from Study
  Country: BR (occurrence: BR)
  Receive Date: 20230410
  Receipt Date: 20241115
  Transmission Date: 20250115
  Serious: Yes (Other)
  Sender: CELLTRION
  Company Number: BR-CELLTRION INC.-2023BR006947

PATIENT

DRUGS (17)
  1. INFLIXIMAB-DYYB [Suspect]
     Active Substance: INFLIXIMAB-DYYB
     Indication: Rheumatoid arthritis
     Dosage: 3 AMPOULES EVERY 2 MONTHS
     Route: 042
     Dates: start: 20221128
  2. INFLIXIMAB-DYYB [Suspect]
     Active Substance: INFLIXIMAB-DYYB
     Dosage: 2 AMPOULES EVERY 2 MONTHS
     Route: 042
     Dates: start: 20221202
  3. INFLIXIMAB-DYYB [Suspect]
     Active Substance: INFLIXIMAB-DYYB
     Dosage: EVERY 2 MONTHS
     Route: 042
     Dates: start: 20240510
  4. INFLIXIMAB-DYYB [Suspect]
     Active Substance: INFLIXIMAB-DYYB
     Dosage: 3 AMPOULES OF 100 MG (300 MG TOTAL) EVERY 2 MONTHS
     Route: 042
     Dates: start: 20240923
  5. INFLIXIMAB-DYYB [Suspect]
     Active Substance: INFLIXIMAB-DYYB
     Dosage: 3 AMPOULES OF 100 MG (300 MG TOTAL) EVERY 2 MONTHS
     Route: 042
     Dates: start: 20221202
  6. PURAN [Concomitant]
     Active Substance: LEVOTHYROXINE SODIUM
     Indication: Hypothyroidism
     Dosage: 1 PILL/TABLET A DAY, START: 40 YEASR AGO
     Route: 048
  7. ENALAPRIL [Concomitant]
     Active Substance: ENALAPRIL
     Indication: Hypertension
     Dosage: 1 PILL/TABLET A DAY, START: 10 YEARS AGO
     Route: 048
  8. ENALAPRIL [Concomitant]
     Active Substance: ENALAPRIL
     Dosage: 1 PILL/TABLET A DAY (STARY DATE 5 YEARS)
     Route: 048
  9. PREDNISONE [Concomitant]
     Active Substance: PREDNISONE
     Indication: Rheumatoid arthritis
     Dosage: 1 PILL/TABLET A DAY, START: 8 YEARS AGO
     Route: 048
  10. CYCLOBENZAPRINE [Concomitant]
     Active Substance: CYCLOBENZAPRINE
     Indication: Rheumatoid arthritis
     Dosage: 1 TABLET A DAY, START: 8 YEARS AGO
     Route: 048
  11. LEFLUNOMIDE [Concomitant]
     Active Substance: LEFLUNOMIDE
     Indication: Rheumatoid arthritis
     Dosage: 1 PILL EVERY 3 DAYS (START DATE: 3 YEARS AGO; STOPPED ABOUT 1 YEAR AGO)
     Route: 048
  12. METFORMIN [Concomitant]
     Active Substance: METFORMIN HYDROCHLORIDE
     Indication: Diabetes mellitus
     Dosage: 2 PILLS A DAY (START DATE:2 YEARS)
     Route: 048
  13. LEVOTHYROXINE [Concomitant]
     Active Substance: LEVOTHYROXINE
     Indication: Hypothyroidism
     Dosage: 1 PILL A DAY (START DATE: 42 YEARS)
     Route: 048
  14. GLIFAGE [Concomitant]
     Active Substance: METFORMIN HYDROCHLORIDE
     Indication: Glucose tolerance impaired
     Dosage: 1 TABLET A DAY
     Route: 048
  15. ROSUVASTATIN [Concomitant]
     Active Substance: ROSUVASTATIN
     Indication: Hypercholesterolaemia
     Dosage: 1 TABLET A DAY
     Route: 048
  16. CYCLOBENZAPRINE [Concomitant]
     Active Substance: CYCLOBENZAPRINE
     Indication: Muscle relaxant therapy
     Dosage: 10 MG, 1 TABLET A DAY
  17. COLLAGEN [Concomitant]
     Active Substance: COLLAGEN
     Indication: Bursitis
     Dosage: UNK

REACTIONS (10)
  - Rheumatoid arthritis [Unknown]
  - Neck mass [Unknown]
  - Neck pain [Unknown]
  - Burning sensation [Unknown]
  - Malaise [Recovered/Resolved]
  - Feeling abnormal [Unknown]
  - Arthralgia [Unknown]
  - Peripheral swelling [Unknown]
  - Therapeutic response shortened [Unknown]
  - Intentional product use issue [Unknown]

NARRATIVE: CASE EVENT DATE: 20240923
